FAERS Safety Report 11567596 (Version 1)
Quarter: 2015Q3

REPORT INFORMATION
  Report Type: Spontaneous
  Country: US (occurrence: US)
  Receive Date: 20150916
  Receipt Date: 20150916
  Transmission Date: 20151125
  Serious: No
  Sender: FDA-Public Use
  Company Number: US-ELI_LILLY_AND_COMPANY-US200907006041

PATIENT
  Age: 76 Year
  Sex: Female

DRUGS (2)
  1. FORTEO [Suspect]
     Active Substance: TERIPARATIDE
     Dates: start: 20090724
  2. NITROGLYCERIN. [Concomitant]
     Active Substance: NITROGLYCERIN
     Dosage: 250 MG, DAILY (1/D)

REACTIONS (9)
  - Muscle spasms [Unknown]
  - Hyperventilation [Unknown]
  - Anxiety [Unknown]
  - Chest pain [Unknown]
  - Neck pain [Not Recovered/Not Resolved]
  - Heart rate increased [Unknown]
  - Palpitations [Unknown]
  - Urinary tract infection [Unknown]
  - Muscle tightness [Unknown]

NARRATIVE: CASE EVENT DATE: 200907
